FAERS Safety Report 5416920-5 (Version None)
Quarter: 2007Q3

REPORT INFORMATION
  Report Type: 
  Country: None (occurrence: None)
  Receive Date: 20070816
  Receipt Date: 20070804
  Transmission Date: 20080115
  Serious: Yes (Other)
  Sender: FDA-Public Use
  Company Number: US-PFIZER INC-2007050384

PATIENT
  Sex: Female
  Weight: 68.636 kg

DRUGS (6)
  1. CHANTIX [Suspect]
     Indication: SMOKING CESSATION THERAPY
     Route: 048
  2. NASONEX [Concomitant]
  3. ADVAIR DISKUS 100/50 [Concomitant]
  4. ALAVERT [Concomitant]
     Indication: HYPERSENSITIVITY
  5. VITAMIN CAP [Concomitant]
  6. CALCIUM CHLORIDE [Concomitant]

REACTIONS (19)
  - ABNORMAL DREAMS [None]
  - ANOREXIA [None]
  - ARTHRALGIA [None]
  - CATARACT [None]
  - CHILLS [None]
  - CORRECTIVE LENS USER [None]
  - COUGH [None]
  - DYSGEUSIA [None]
  - ECCHYMOSIS [None]
  - FATIGUE [None]
  - FEELING ABNORMAL [None]
  - HEADACHE [None]
  - INSOMNIA [None]
  - LOW DENSITY LIPOPROTEIN INCREASED [None]
  - NAUSEA [None]
  - PYREXIA [None]
  - SLEEP DISORDER [None]
  - VARICOSE VEIN [None]
  - WEIGHT DECREASED [None]
